FAERS Safety Report 7362498-9 (Version None)
Quarter: 2011Q1

REPORT INFORMATION
  Report Type: 
  Country: None (occurrence: None)
  Receive Date: 20110318
  Receipt Date: 20110309
  Transmission Date: 20110831
  Serious: Yes (Hospitalization)
  Sender: FDA-Public Use
  Company Number: FR-GENENTECH-315121

PATIENT
  Age: 75 Year
  Sex: Female

DRUGS (1)
  1. MABTHERA [Suspect]
     Indication: CONNECTIVE TISSUE DISORDER
     Dosage: 1 DF, UNK
     Route: 042
     Dates: start: 20110103, end: 20110103

REACTIONS (3)
  - DYSPHAGIA [None]
  - HYPERTHERMIA [None]
  - ERYTHEMA [None]
